FAERS Safety Report 9385330 (Version 4)
Quarter: 2015Q2

REPORT INFORMATION
  Report Type: Spontaneous
  Country: CA (occurrence: CA)
  Receive Date: 20130705
  Receipt Date: 20150526
  Transmission Date: 20150821
  Serious: Yes (Death, Hospitalization, Other)
  Sender: FDA-Public Use
  Company Number: CA-GLAXOSMITHKLINE-A1029828A

PATIENT
  Age: 37 Year
  Sex: Female
  Weight: 82 kg

DRUGS (17)
  1. FLOLAN [Suspect]
     Active Substance: EPOPROSTENOL SODIUM
     Indication: PULMONARY ARTERIAL HYPERTENSION
     Dosage: UNK, CO
     Route: 042
     Dates: start: 20060315
  2. VIAGRA [Concomitant]
     Active Substance: SILDENAFIL CITRATE
  3. CYCLOBENZAPRINE [Concomitant]
     Active Substance: CYCLOBENZAPRINE
  4. LACTULOSE. [Concomitant]
     Active Substance: LACTULOSE
  5. RATIO-CODEINE [Concomitant]
  6. FLOLAN [Suspect]
     Active Substance: EPOPROSTENOL SODIUM
     Indication: PULMONARY ARTERIAL HYPERTENSION
     Dosage: 3 MG/DAY WITH A CASSETTE, 100 ML OF DILUENT AT A RATE OF 3.4 ML/HR.
     Route: 042
     Dates: start: 20060315
  7. ATIVAN [Concomitant]
     Active Substance: LORAZEPAM
  8. PANTOPRAZOLE [Concomitant]
     Active Substance: PANTOPRAZOLE SODIUM
  9. ADCIRCA [Concomitant]
     Active Substance: TADALAFIL
  10. LASIX [Concomitant]
     Active Substance: FUROSEMIDE
  11. TECTA [Concomitant]
     Active Substance: PANTOPRAZOLE MAGNESIUM
  12. WARFARIN [Concomitant]
     Active Substance: WARFARIN
  13. SENNOSIDE [Concomitant]
     Active Substance: SENNOSIDES
  14. CODEINE [Concomitant]
     Active Substance: CODEINE
  15. CELAPRAM [Concomitant]
     Active Substance: CITALOPRAM HYDROBROMIDE
  16. PALAFER [Concomitant]
     Active Substance: FERROUS FUMARATE
  17. CITALOPRAM [Concomitant]
     Active Substance: CITALOPRAM HYDROBROMIDE

REACTIONS (8)
  - Activities of daily living impaired [Unknown]
  - Device breakage [Unknown]
  - Pneumonia [Unknown]
  - Lung disorder [Unknown]
  - Chest discomfort [Unknown]
  - Death [Fatal]
  - Dyspnoea [Unknown]
  - Oral candidiasis [Unknown]

NARRATIVE: CASE EVENT DATE: 20150129
